FAERS Safety Report 6595876-6 (Version None)
Quarter: 2010Q1

REPORT INFORMATION
  Report Type: 
  Country: None (occurrence: None)
  Receive Date: 20100223
  Receipt Date: 20100211
  Transmission Date: 20100710
  Serious: Yes (Death)
  Sender: FDA-Public Use
  Company Number: FR-ELI_LILLY_AND_COMPANY-FR201002003411

PATIENT
  Age: 78 Year
  Sex: Female

DRUGS (4)
  1. CYMBALTA [Suspect]
     Dosage: UNK, UNKNOWN
     Route: 048
  2. ZYPREXA [Suspect]
     Dosage: UNK, UNKNOWN
     Route: 048
  3. RIVOTRIL [Concomitant]
     Dosage: UNK, UNKNOWN
     Route: 048
  4. DAFALGAN [Concomitant]
     Dosage: UNK, UNKNOWN
     Route: 048

REACTIONS (3)
  - DEATH [None]
  - DRUG LEVEL ABOVE THERAPEUTIC [None]
  - OVERDOSE [None]
